FAERS Safety Report 9119524 (Version 2)
Quarter: 2013Q1

REPORT INFORMATION
  Report Type: Spontaneous
  Country: US (occurrence: US)
  Receive Date: 20130226
  Receipt Date: 20130318
  Transmission Date: 20140127
  Serious: Yes (Other)
  Sender: FDA-Public Use
  Company Number: US-BAYER-2013-023656

PATIENT
  Age: 36 Year
  Sex: Female
  Weight: 45.35 kg

DRUGS (1)
  1. MIRENA [Suspect]
     Indication: CONTRACEPTION
     Dosage: 20 MCG/24HR, CONT
     Route: 015
     Dates: start: 20120403, end: 20130213

REACTIONS (4)
  - Pain [None]
  - Medical device discomfort [None]
  - Genital haemorrhage [None]
  - Device dislocation [None]
